FAERS Safety Report 12654580 (Version 2)
Quarter: 2016Q3

REPORT INFORMATION
  Report Type: Spontaneous
  Country: JP (occurrence: JP)
  Receive Date: 20160816
  Receipt Date: 20160823
  Transmission Date: 20161109
  Serious: No
  Sender: FDA-Public Use
  Company Number: PHJP2016JP019476

PATIENT
  Age: 63 Year
  Sex: Female

DRUGS (1)
  1. VOTRIENT [Suspect]
     Active Substance: PAZOPANIB HYDROCHLORIDE
     Indication: RENAL CELL CARCINOMA
     Dosage: 800 MG, QD
     Route: 048
     Dates: start: 20160702

REACTIONS (4)
  - Heart rate increased [Recovered/Resolved]
  - Peripheral vascular disorder [Recovered/Resolved]
  - Sensation of blood flow [Recovered/Resolved]
  - Hypertension [Not Recovered/Not Resolved]
